FAERS Safety Report 15271692 (Version 1)
Quarter: 2018Q4

REPORT INFORMATION
  Report Type: Spontaneous
  Country: US (occurrence: US)
  Receive Date: 20180813
  Receipt Date: 20180813
  Transmission Date: 20190204
  Serious: No
  Sender: FDA-Public Use
  Company Number: US-MISSION PHARMACAL COMPANY-2053626

PATIENT
  Age: 61 Year
  Sex: Female

DRUGS (1)
  1. THIOLA [Suspect]
     Active Substance: TIOPRONIN
     Indication: CYSTINURIA
     Route: 048
     Dates: start: 20180621

REACTIONS (5)
  - Skin wrinkling [Unknown]
  - Dysgeusia [Unknown]
  - Nausea [Unknown]
  - Faeces soft [Unknown]
  - Lymphadenopathy [Unknown]
